FAERS Safety Report 12691091 (Version 2)
Quarter: 2016Q4

REPORT INFORMATION
  Report Type: Spontaneous
  Country: NL (occurrence: NL)
  Receive Date: 20160826
  Receipt Date: 20161116
  Transmission Date: 20170207
  Serious: Yes (Other)
  Sender: FDA-Public Use
  Company Number: NL-SAOL THERAPEUTICS-2016SAO00482

PATIENT
  Sex: Male

DRUGS (1)
  1. COMPOUNDED BACLOFEN [Suspect]
     Active Substance: BACLOFEN
     Indication: MUSCLE SPASTICITY
     Dosage: 423 ?G, \DAY
     Route: 037

REACTIONS (5)
  - Device failure [Unknown]
  - Influenza like illness [Unknown]
  - Hypertension [Unknown]
  - Drug withdrawal syndrome [Unknown]
  - Feeling cold [Unknown]
